FAERS Safety Report 5467567-6 (Version None)
Quarter: 2007Q3

REPORT INFORMATION
  Report Type: 
  Country: None (occurrence: None)
  Receive Date: 20070921
  Receipt Date: 20070913
  Transmission Date: 20080115
  Serious: Yes (Hospitalization, Other)
  Sender: FDA-Public Use
  Company Number: WAES 0708USA04134

PATIENT
  Age: 18 Year
  Sex: Female
  Weight: 51.7101 kg

DRUGS (4)
  1. CAP VORINOSTAT UNK [Suspect]
     Indication: ACUTE MYELOID LEUKAEMIA
     Dosage: 400 MG/DAILY/PO; 400 MG/DAILY/PO
     Route: 048
     Dates: start: 20070726, end: 20070801
  2. CAP VORINOSTAT UNK [Suspect]
     Indication: ACUTE MYELOID LEUKAEMIA
     Dosage: 400 MG/DAILY/PO; 400 MG/DAILY/PO
     Route: 048
     Dates: start: 20070825, end: 20070831
  3. INJ DECITABINE UNK [Suspect]
     Indication: ACUTE MYELOID LEUKAEMIA
     Dosage: 20 MG/M (2)/DAILY/IV; 20 MG/M (2) /DAILY/IV
     Route: 042
     Dates: start: 20070721, end: 20070725
  4. INJ DECITABINE UNK [Suspect]
     Indication: ACUTE MYELOID LEUKAEMIA
     Dosage: 20 MG/M (2)/DAILY/IV; 20 MG/M (2) /DAILY/IV
     Route: 042
     Dates: start: 20070820, end: 20070824

REACTIONS (7)
  - CAECITIS [None]
  - CELLULITIS [None]
  - CHEILITIS [None]
  - FEBRILE NEUTROPENIA [None]
  - HERPES SIMPLEX [None]
  - ORAL INTAKE REDUCED [None]
  - WEIGHT DECREASED [None]
